FAERS Safety Report 11761362 (Version 3)
Quarter: 2016Q1

REPORT INFORMATION
  Report Type: Report from Study
  Country: GR (occurrence: GR)
  Receive Date: 20151120
  Receipt Date: 20160212
  Transmission Date: 20160525
  Serious: Yes (Other)
  Sender: FDA-Public Use
  Company Number: PHHY2015GR147705

PATIENT
  Age: 61 Year
  Sex: Female
  Weight: 70 kg

DRUGS (2)
  1. AFINITOR [Suspect]
     Active Substance: EVEROLIMUS
     Indication: BREAST CANCER
     Dosage: 10 MG, QD
     Route: 048
     Dates: start: 20150907
  2. GILENYA [Concomitant]
     Active Substance: FINGOLIMOD HYDROCHLORIDE
     Indication: PRODUCT USED FOR UNKNOWN INDICATION
     Dosage: UNK
     Route: 065
     Dates: end: 20151103

REACTIONS (12)
  - Haemoptysis [Recovered/Resolved]
  - Pain [Not Recovered/Not Resolved]
  - Rectal haemorrhage [Recovered/Resolved]
  - Tongue discolouration [Unknown]
  - Mouth ulceration [Unknown]
  - Mucosal inflammation [Unknown]
  - Productive cough [Recovered/Resolved]
  - Aphthous ulcer [Recovered/Resolved]
  - Aphthous ulcer [Unknown]
  - Dysphagia [Recovered/Resolved]
  - Mouth ulceration [Recovered/Resolved]
  - Tongue ulceration [Unknown]

NARRATIVE: CASE EVENT DATE: 20150927
